FAERS Safety Report 6097823-2 (Version None)
Quarter: 2009Q1

REPORT INFORMATION
  Report Type: 
  Country: None (occurrence: None)
  Receive Date: 20090227
  Receipt Date: 20090224
  Transmission Date: 20090719
  Serious: Yes (Death, Other)
  Sender: FDA-Public Use
  Company Number: US-CELGENEUS-163-21880-08070054

PATIENT
  Sex: Male

DRUGS (2)
  1. REVLIMID [Suspect]
     Route: 048
     Dates: start: 20080501
  2. REVLIMID [Suspect]
     Route: 048
     Dates: start: 20080601, end: 20080101

REACTIONS (4)
  - NEOPLASM PROGRESSION [None]
  - OEDEMA PERIPHERAL [None]
  - PANCYTOPENIA [None]
  - THROMBOSIS [None]
